FAERS Safety Report 9196541 (Version 2)
Quarter: 2013Q2

REPORT INFORMATION
  Report Type: Spontaneous
  Country: US (occurrence: US)
  Receive Date: 20130328
  Receipt Date: 20130610
  Transmission Date: 20140414
  Serious: No
  Sender: FDA-Public Use
  Company Number: US-PFIZER INC-2013099339

PATIENT
  Age: 60 Year
  Sex: Female

DRUGS (14)
  1. METHYLPREDNISOLONE [Suspect]
     Indication: INFLAMMATION
     Dosage: 4 MG, UNK
     Route: 048
     Dates: start: 20130322
  2. SYNTHROID [Concomitant]
     Dosage: 0.137 MG, UNK
  3. ATENOLOL [Concomitant]
     Indication: HYPERTENSION
     Dosage: 100 MG, UNK
  4. DYAZIDE [Concomitant]
     Indication: HYPERTENSION
     Dosage: UNK
  5. NIFEDIPINE ER [Concomitant]
     Indication: HYPERTENSION
     Dosage: 30 MG, UNK
  6. FOLIC ACID [Concomitant]
     Dosage: 2 MG, UNK
  7. TRICOR [Concomitant]
     Dosage: 145 MG, UNK
  8. ZANTAC [Concomitant]
     Dosage: 150 MG, 1 EVENING
  9. VITAMIN D [Concomitant]
     Dosage: 4000 IU, UNK
  10. CO-Q-10 [Concomitant]
     Dosage: 100 MG, 3X/WEEK
  11. METHOTREXATE [Concomitant]
     Dosage: 15 MG, WEEKLY
  12. TUMS EXTRA STRENGTH [Concomitant]
     Dosage: UNK, AS NEEDED
  13. FLONASE [Concomitant]
     Indication: HYPERSENSITIVITY
     Dosage: 1 SPRAY IN EACH NOSTRIL, AS NEEDED
     Route: 045
  14. TYLENOL [Concomitant]
     Indication: ARTHRITIS
     Dosage: 1200 MG, AS NEEDED

REACTIONS (2)
  - Dysgeusia [Recovered/Resolved]
  - Product taste abnormal [Recovered/Resolved]
